FAERS Safety Report 7170567-1 (Version None)
Quarter: 2010Q4

REPORT INFORMATION
  Report Type: 
  Country: None (occurrence: None)
  Receive Date: 20101217
  Receipt Date: 20100825
  Transmission Date: 20110411
  Serious: No
  Sender: FDA-Public Use
  Company Number: A0877687A

PATIENT

DRUGS (1)
  1. LEXIVA [Suspect]

REACTIONS (1)
  - ADVERSE EVENT [None]
